FAERS Safety Report 7213129-X (Version None)
Quarter: 2011Q1

REPORT INFORMATION
  Report Type: 
  Country: None (occurrence: None)
  Receive Date: 20110106
  Receipt Date: 20101228
  Transmission Date: 20110831
  Serious: Yes (Other)
  Sender: FDA-Public Use
  Company Number: PHHY2010DE89322

PATIENT
  Sex: Male
  Weight: 68 kg

DRUGS (2)
  1. CLINDAMYCIN [Concomitant]
  2. ZOLEDRONIC ACID [Suspect]
     Indication: METASTASES TO BONE
     Dosage: UNK

REACTIONS (2)
  - THROMBOCYTOPENIA [None]
  - OSTEONECROSIS OF JAW [None]
